FAERS Safety Report 17246013 (Version 1)
Quarter: 2020Q1

REPORT INFORMATION
  Report Type: Spontaneous
  Country: GB (occurrence: GB)
  Receive Date: 20200108
  Receipt Date: 20200108
  Transmission Date: 20200409
  Serious: Yes (Other)
  Sender: FDA-Public Use
  Company Number: GB-TEVA-2020-GB-1164490

PATIENT
  Age: 31 Year
  Sex: Male
  Weight: 82 kg

DRUGS (2)
  1. MIRTAZAPINE. [Suspect]
     Active Substance: MIRTAZAPINE
     Indication: DEPRESSION
     Route: 065
     Dates: start: 2017
  2. VENSIR XL PROLONGED RELEASE [Suspect]
     Active Substance: VENLAFAXINE HYDROCHLORIDE
     Indication: DEPRESSION
     Dosage: 175 MG
     Route: 048
     Dates: start: 20160106, end: 20190812

REACTIONS (1)
  - Blunted affect [Recovering/Resolving]

NARRATIVE: CASE EVENT DATE: 20160113
